FAERS Safety Report 10204269 (Version 2)
Quarter: 2014Q2

REPORT INFORMATION
  Report Type: Spontaneous
  Country: JP (occurrence: JP)
  Receive Date: 20140529
  Receipt Date: 20140603
  Transmission Date: 20141212
  Serious: Yes (Death)
  Sender: FDA-Public Use
  Company Number: JP-BAXTER-2014BAX026905

PATIENT
  Sex: Male

DRUGS (4)
  1. DIANEAL-N PD-4 2.5 [Suspect]
     Indication: RENAL FAILURE CHRONIC
     Dosage: 2500 ML BAG
     Route: 033
     Dates: end: 20140525
  2. DIANEAL-N PD-4 2.5 [Suspect]
     Indication: PERITONEAL DIALYSIS
  3. EXTRANEAL [Suspect]
     Indication: RENAL FAILURE CHRONIC
     Dosage: 1500 ML BAG
     Route: 033
     Dates: end: 20140525
  4. EXTRANEAL [Suspect]
     Indication: PERITONEAL DIALYSIS

REACTIONS (1)
  - Death [Fatal]
